FAERS Safety Report 5356693-8 (Version None)
Quarter: 2007Q2

REPORT INFORMATION
  Report Type: 
  Country: None (occurrence: None)
  Receive Date: 20070530
  Receipt Date: 20061218
  Transmission Date: 20071010
  Serious: Yes (Other)
  Sender: FDA-Public Use
  Company Number: US200608003826

PATIENT
  Age: 37 Year
  Sex: Male
  Weight: 99.8 kg

DRUGS (3)
  1. ZYPREXA [Suspect]
     Indication: CONFUSIONAL STATE
     Dates: start: 19980101, end: 20000101
  2. QUETIAPINE FUMARATE [Concomitant]
  3. PAROXETINE [Concomitant]

REACTIONS (5)
  - DIABETES MELLITUS [None]
  - DIABETIC COMA [None]
  - DIABETIC KETOACIDOSIS [None]
  - HYPERGLYCAEMIA [None]
  - PANCREATITIS [None]
